FAERS Safety Report 6905416-7 (Version None)
Quarter: 2010Q3

REPORT INFORMATION
  Report Type: 
  Country: None (occurrence: None)
  Receive Date: 20100802
  Receipt Date: 20100721
  Transmission Date: 20110219
  Serious: Yes (Other)
  Sender: FDA-Public Use
  Company Number: 103372

PATIENT
  Age: 60 Year
  Sex: Female

DRUGS (1)
  1. METHOTREXATE [Suspect]
     Indication: PRODUCT USED FOR UNKNOWN INDICATION
     Dosage: 0.9ML SUBCUTANEOUSLY, ONCE WEEKLY
     Route: 058

REACTIONS (2)
  - INCORRECT PRODUCT STORAGE [None]
  - MEDICATION ERROR [None]
